FAERS Safety Report 10042635 (Version 1)
Quarter: 2014Q1

REPORT INFORMATION
  Report Type: Spontaneous
  Country: BR (occurrence: BR)
  Receive Date: 20140327
  Receipt Date: 20140327
  Transmission Date: 20141002
  Serious: Yes (Other)
  Sender: FDA-Public Use
  Company Number: BR-PFIZER INC-2014084297

PATIENT
  Age: 60 Year
  Sex: Male
  Weight: 78 kg

DRUGS (10)
  1. LIPITOR [Suspect]
     Dosage: STRENGTH 20 MG
     Route: 048
     Dates: start: 20080321
  2. ASPIRINA [Concomitant]
     Dosage: 1X/DAY
     Dates: start: 2008
  3. CONCOR [Concomitant]
     Dosage: STRENGTH 5 MG, UNKNOWN DOSE 2X/DAY
     Dates: start: 2010
  4. DIOVAN [Concomitant]
     Dosage: STRENGTH 320 MG UNKNOWN DOSE 1X/DAY
     Dates: start: 2012
  5. GALVUSMET [Concomitant]
     Dosage: STRENGTH 50MG/850 UNKNOWN DOSAGE, 2X/DAY
     Dates: start: 20140306
  6. LIPLESS [Concomitant]
     Dosage: STRENGTH 100 (NO UNITS PROVIDED) UNKNOWN DOSE 1X/DAY
     Dates: start: 20140306
  7. MONOCORDIL [Concomitant]
     Dosage: STRENGTH 50 MG, UNKNOWN DOSE 1X/DAY
     Dates: start: 2010
  8. PROCORALAN [Concomitant]
     Dosage: STRENGTH 7.5 MG, UNKNOWN DOSE 2X/DAY
     Dates: start: 20140306
  9. ROXFLAN [Concomitant]
     Dosage: STRENGTH 10 MG, UNKNOWN DOSE 1X/DAY
     Dates: start: 20140306
  10. VASTAREL [Concomitant]
     Dosage: STRENGTH 35 MG, UNKNOWN DOSE 2X/DAY
     Dates: start: 2010

REACTIONS (2)
  - Coronary artery disease [Unknown]
  - Angiopathy [Unknown]
